FAERS Safety Report 7074970-X (Version None)
Quarter: 2010Q4

REPORT INFORMATION
  Report Type: 
  Country: None (occurrence: None)
  Receive Date: 20101029
  Receipt Date: 20100210
  Transmission Date: 20110411
  Serious: No
  Sender: FDA-Public Use
  Company Number: US-WYE-H12983210

PATIENT
  Age: 75 Year
  Sex: Male
  Weight: 77.18 kg

DRUGS (1)
  1. ALAVERT [Suspect]
     Indication: NASOPHARYNGITIS
     Dosage: ONE TABLET EVERY TWENTY TO TWENTY-FOUR HOURS
     Route: 048
     Dates: start: 20100110

REACTIONS (2)
  - DRUG EFFECT DECREASED [None]
  - OVERDOSE [None]
